FAERS Safety Report 21780646 (Version 5)
Quarter: 2023Q1

REPORT INFORMATION
  Report Type: Report from Study
  Country: AR (occurrence: None)
  Receive Date: 20221227
  Receipt Date: 20230127
  Transmission Date: 20230417
  Serious: Yes (Hospitalization)
  Sender: FDA-Public Use
  Company Number: AR-ROCHE-3245461

PATIENT
  Age: 46 Year
  Sex: Male
  Weight: 94 kg

DRUGS (6)
  1. MOSUNETUZUMAB [Suspect]
     Active Substance: MOSUNETUZUMAB
     Indication: B-cell lymphoma
     Dosage: START DATE OF MOST RECENT DOSE (5 MG) OF STUDY DRUG PRIOR TO SAE: 13/DEC/2022
     Route: 058
     Dates: start: 20221213
  2. POLATUZUMAB VEDOTIN [Suspect]
     Active Substance: POLATUZUMAB VEDOTIN
     Indication: B-cell lymphoma
     Dosage: START DATE OF MOST RECENT DOSE (169 MG) OF STUDY DRUG PRIOR TO SAE: 13/DEC/2022
     Route: 042
     Dates: start: 20221213
  3. QUETIAPINE [Concomitant]
     Active Substance: QUETIAPINE
     Indication: Intellectual disability
     Route: 048
  4. CLONAZEPAM [Concomitant]
     Active Substance: CLONAZEPAM
     Indication: Intellectual disability
     Route: 048
  5. COMBIVENT [Concomitant]
     Active Substance: ALBUTEROL SULFATE\IPRATROPIUM BROMIDE
     Indication: Asthma
     Dosage: MEDICATION DOSE 1 PUFF
     Route: 055
  6. ENOXAPARIN SODIUM [Concomitant]
     Active Substance: ENOXAPARIN SODIUM
     Route: 058
     Dates: start: 20221207, end: 20230102

REACTIONS (2)
  - Skin infection [Recovered/Resolved]
  - Injection site erythema [Recovered/Resolved]

NARRATIVE: CASE EVENT DATE: 20221214
